FAERS Safety Report 19717919 (Version 1)
Quarter: 2021Q3

REPORT INFORMATION
  Report Type: Spontaneous
  Country: ES (occurrence: ES)
  Receive Date: 20210819
  Receipt Date: 20210819
  Transmission Date: 20211014
  Serious: Yes (Other)
  Sender: FDA-Public Use
  Company Number: NVSC2020ES005265

PATIENT
  Age: 77 Year
  Sex: Male

DRUGS (3)
  1. ATORVASTATIN [Suspect]
     Active Substance: ATORVASTATIN
     Indication: PRODUCT USED FOR UNKNOWN INDICATION
     Dosage: 20 MG, QD
     Route: 065
  2. DAPTOMYCIN. [Interacting]
     Active Substance: DAPTOMYCIN
     Indication: ENDOCARDITIS
     Dosage: 5.8 MG/KG, QD
     Route: 065
  3. DAPTOMYCIN. [Interacting]
     Active Substance: DAPTOMYCIN
     Dosage: 10 MG/KG, QD
     Route: 065

REACTIONS (4)
  - Blood creatine phosphokinase increased [Unknown]
  - Musculoskeletal disorder [Unknown]
  - Limb discomfort [Unknown]
  - Drug interaction [Recovered/Resolved]
